FAERS Safety Report 4353332-X (Version None)
Quarter: 2004Q2

REPORT INFORMATION
  Report Type: 
  Country: None (occurrence: None)
  Receive Date: 20040429
  Receipt Date: 20040420
  Transmission Date: 20050107
  Serious: Yes (Hospitalization)
  Sender: FDA-Public Use
  Company Number: KDL072122

PATIENT
  Sex: Female

DRUGS (1)
  1. EPOGEN [Suspect]
     Indication: ANAEMIA

REACTIONS (4)
  - DIARRHOEA [None]
  - DIZZINESS [None]
  - FATIGUE [None]
  - RED BLOOD CELL COUNT DECREASED [None]
